FAERS Safety Report 25707608 (Version 1)
Quarter: 2025Q3

REPORT INFORMATION
  Report Type: Spontaneous
  Country: EU (occurrence: EU)
  Receive Date: 20250820
  Receipt Date: 20250820
  Transmission Date: 20251021
  Serious: Yes (Hospitalization)
  Sender: MYLAN
  Company Number: None

PATIENT
  Age: 94 Year
  Sex: Female
  Weight: 49.2 kg

DRUGS (12)
  1. SERTRALINE [Suspect]
     Active Substance: SERTRALINE HYDROCHLORIDE
     Indication: Depression
     Dosage: 50 MILLIGRAM, QD
     Dates: start: 20250714, end: 20250727
  2. SERTRALINE [Suspect]
     Active Substance: SERTRALINE HYDROCHLORIDE
     Dosage: 50 MILLIGRAM, QD
     Route: 048
     Dates: start: 20250714, end: 20250727
  3. SERTRALINE [Suspect]
     Active Substance: SERTRALINE HYDROCHLORIDE
     Dosage: 50 MILLIGRAM, QD
     Route: 048
     Dates: start: 20250714, end: 20250727
  4. SERTRALINE [Suspect]
     Active Substance: SERTRALINE HYDROCHLORIDE
     Dosage: 50 MILLIGRAM, QD
     Dates: start: 20250714, end: 20250727
  5. CYAMEMAZINE [Suspect]
     Active Substance: CYAMEMAZINE
     Indication: Paranoia
     Dosage: 50 MILLIGRAM, QD
     Dates: start: 202506, end: 20250727
  6. CYAMEMAZINE [Suspect]
     Active Substance: CYAMEMAZINE
     Dosage: 50 MILLIGRAM, QD
     Route: 048
     Dates: start: 202506, end: 20250727
  7. CYAMEMAZINE [Suspect]
     Active Substance: CYAMEMAZINE
     Dosage: 50 MILLIGRAM, QD
     Route: 048
     Dates: start: 202506, end: 20250727
  8. CYAMEMAZINE [Suspect]
     Active Substance: CYAMEMAZINE
     Dosage: 50 MILLIGRAM, QD
     Dates: start: 202506, end: 20250727
  9. RISPERDAL [Suspect]
     Active Substance: RISPERIDONE
     Indication: Aggression
  10. RISPERDAL [Suspect]
     Active Substance: RISPERIDONE
     Route: 048
  11. RISPERDAL [Suspect]
     Active Substance: RISPERIDONE
     Route: 048
  12. RISPERDAL [Suspect]
     Active Substance: RISPERIDONE

REACTIONS (1)
  - Hepatitis cholestatic [Recovered/Resolved with Sequelae]

NARRATIVE: CASE EVENT DATE: 20250727
